FAERS Safety Report 8377593-5 (Version None)
Quarter: 2012Q2

REPORT INFORMATION
  Report Type: 
  Country: None (occurrence: None)
  Receive Date: 20120522
  Receipt Date: 20120515
  Transmission Date: 20120825
  Serious: Yes (Death)
  Sender: FDA-Public Use
  Company Number: FR-JNJFOC-20120514237

PATIENT

DRUGS (5)
  1. CISPLATIN [Suspect]
     Indication: BLADDER CANCER
     Route: 065
  2. NEUPOGEN [Concomitant]
     Route: 065
  3. DOXORUBICIN HCL [Suspect]
     Indication: BLADDER CANCER
     Route: 042
  4. METHOTREXATE [Suspect]
     Indication: BLADDER CANCER
     Route: 065
  5. VINBLASTINE SULFATE [Suspect]
     Indication: BLADDER CANCER
     Route: 065

REACTIONS (2)
  - DEATH [None]
  - OFF LABEL USE [None]
